FAERS Safety Report 8860234 (Version 1)
Quarter: 2012Q4

REPORT INFORMATION
  Report Type: 
  Country: US (occurrence: US)
  Receive Date: 20121025
  Receipt Date: 20121025
  Transmission Date: 20130627
  Serious: Yes (Other)
  Sender: FDA-Public Use
  Company Number: US-PAR PHARMACEUTICAL, INC-2012SCPR004669

PATIENT

DRUGS (4)
  1. FLUOXETINE [Suspect]
     Indication: DEPRESSION
     Dosage: 1 capsule once a day
     Route: 048
     Dates: start: 20120921
  2. ABILIFY [Concomitant]
     Indication: DEPRESSION
     Dosage: UNK, Unknown
     Route: 065
  3. PLIVA 648 [Concomitant]
     Indication: DEPRESSION
     Dosage: UNK, Unknown
     Route: 065
  4. PROZAC [Concomitant]
     Indication: DEPRESSION
     Dosage: UNK, Unknown
     Route: 065

REACTIONS (5)
  - Hyperglycaemia [Unknown]
  - Suicidal ideation [Not Recovered/Not Resolved]
  - Depression [Not Recovered/Not Resolved]
  - Drug ineffective [Not Recovered/Not Resolved]
  - Product quality issue [Unknown]
